FAERS Safety Report 19418863 (Version 1)
Quarter: 2021Q2

REPORT INFORMATION
  Report Type: Report from Study
  Country: IT (occurrence: IT)
  Receive Date: 20210615
  Receipt Date: 20210615
  Transmission Date: 20210717
  Serious: Yes (Hospitalization)
  Sender: FDA-Public Use
  Company Number: IT-ACCORD-228325

PATIENT
  Age: 66 Year
  Sex: Male

DRUGS (2)
  1. NALTREXONE/NALTREXONE HYDROCHLORIDE [Suspect]
     Active Substance: NALTREXONE
     Indication: PRODUCT USED FOR UNKNOWN INDICATION
     Route: 048
     Dates: start: 20210101, end: 20210222
  2. DELAPRIDE [Suspect]
     Active Substance: DELAPRIL HYDROCHLORIDE\INDAPAMIDE
     Indication: PRODUCT USED FOR UNKNOWN INDICATION
     Dosage: 30 MG + 1.25 MG TABLETS
     Route: 048
     Dates: start: 20210101, end: 20210222

REACTIONS (3)
  - Loss of consciousness [Unknown]
  - Syncope [Unknown]
  - Hyperhidrosis [Unknown]

NARRATIVE: CASE EVENT DATE: 20210222
